FAERS Safety Report 5562752-7 (Version None)
Quarter: 2007Q4

REPORT INFORMATION
  Report Type: 
  Country: None (occurrence: None)
  Receive Date: 20071211
  Receipt Date: 20071211
  Transmission Date: 20080405
  Serious: Yes (Other)
  Sender: FDA-Public Use
  Company Number: None

PATIENT
  Age: 43 Year
  Sex: Female
  Weight: 58.9676 kg

DRUGS (1)
  1. DILANTIN [Suspect]
     Indication: EPILEPSY
     Dosage: 200MG AM + 100MG PM  DAILY  PO
     Route: 048
     Dates: start: 20071209, end: 20071209

REACTIONS (15)
  - AURA [None]
  - BALANCE DISORDER [None]
  - CRYING [None]
  - DIZZINESS [None]
  - DRUG TOXICITY [None]
  - DYSARTHRIA [None]
  - DYSGEUSIA [None]
  - FEAR [None]
  - MALAISE [None]
  - PAROSMIA [None]
  - PHARMACEUTICAL PRODUCT COMPLAINT [None]
  - SOMNOLENCE [None]
  - TREMOR [None]
  - URINE ODOUR ABNORMAL [None]
  - VISION BLURRED [None]
